FAERS Safety Report 7498359-4 (Version None)
Quarter: 2011Q2

REPORT INFORMATION
  Report Type: 
  Country: None (occurrence: None)
  Receive Date: 20110524
  Receipt Date: 20090501
  Transmission Date: 20111010
  Serious: Yes (Other)
  Sender: FDA-Public Use
  Company Number: US-BAYER-200920232NA

PATIENT
  Age: 63 Year
  Sex: Male
  Weight: 132.7 kg

DRUGS (25)
  1. LANTUS [Concomitant]
     Dosage: 75 U, TID
     Route: 058
  2. REGULAR INSULIN [Concomitant]
     Dosage: 20 U, UNK
     Route: 042
     Dates: start: 20050617, end: 20050617
  3. DOPAMINE HCL [Concomitant]
     Dosage: UNK
     Route: 042
     Dates: start: 20050617
  4. PROTAMINE SULFATE [Concomitant]
     Dosage: 250 MG, CARDIOPULMONARY BYPASS PUMP
     Dates: start: 20050617, end: 20050617
  5. LISINOPRIL [Concomitant]
     Dosage: UNK
     Route: 048
     Dates: start: 20080101
  6. LASIX [Concomitant]
     Dosage: 40 MG, 1/2 TAB EVERY OTHER DAY
     Route: 048
  7. HUMALOG [Concomitant]
     Dosage: 30 U, TID
     Route: 058
  8. TOPROL-XL [Concomitant]
     Dosage: 50 MG, QD
     Route: 048
  9. DIGOXIN [Concomitant]
     Dosage: 0.25 MG, QD
     Route: 048
  10. DIOVAN [Concomitant]
     Dosage: 320 MG, QD
     Route: 048
  11. COUMADIN [Concomitant]
     Dosage: 7.5 MG, QD
     Route: 048
  12. SUFENTA PRESERVATIVE FREE [Concomitant]
     Dosage: 5 ML, UNK
     Route: 042
     Dates: start: 20050617, end: 20050617
  13. TRASYLOL [Suspect]
     Indication: CORONARY ARTERY BYPASS
     Dosage: UNK
     Route: 042
     Dates: start: 20050617, end: 20050617
  14. LIPITOR [Concomitant]
     Dosage: 80 MG, HS
     Route: 048
  15. VERSED [Concomitant]
     Dosage: 4 MG, UNK
     Route: 042
     Dates: start: 20050617, end: 20050617
  16. NORCURON [Concomitant]
     Dosage: 20 MG, UNK
     Route: 042
     Dates: start: 20050617, end: 20050617
  17. HEPARIN [Concomitant]
     Dosage: 30000 U, UNK
     Route: 042
     Dates: start: 20050617, end: 20050617
  18. HEPARIN [Concomitant]
     Dosage: 10000 U, CARDIOPULMONARY BYPASS PUMP
     Dates: start: 20050617, end: 20050617
  19. ALBUMIN (HUMAN) [Concomitant]
     Dosage: 100 ML, CARDIOPULMONARY BYPASS PUMP
     Dates: start: 20050617, end: 20050617
  20. AMIDATE [Concomitant]
     Dosage: 20 MG, UNK
     Route: 042
     Dates: start: 20050617, end: 20050617
  21. PLASMA [Concomitant]
     Dosage: 4 U, CARDIOPULMONARY BYPASS PUMP
     Dates: start: 20050617, end: 20050617
  22. SPIRONOLACTONE [Concomitant]
     Dosage: 50 MG, QD
     Route: 048
     Dates: start: 20050101
  23. FENTANYL [Concomitant]
     Dosage: 250 MG, UNK
     Route: 042
     Dates: start: 20050617, end: 20050617
  24. K-DUR [Concomitant]
     Dosage: 20 MEQ, BID
     Route: 048
  25. PLATELETS [Concomitant]
     Dosage: 12 U, CARDIOPULMONARY BYPASS PUMP
     Dates: start: 20050617, end: 20050617

REACTIONS (11)
  - RENAL IMPAIRMENT [None]
  - EMOTIONAL DISTRESS [None]
  - PAIN [None]
  - INJURY [None]
  - UNEVALUABLE EVENT [None]
  - ANXIETY [None]
  - STRESS [None]
  - ANHEDONIA [None]
  - RENAL FAILURE [None]
  - RENAL INJURY [None]
  - FEAR [None]
